FAERS Safety Report 5231355-6 (Version None)
Quarter: 2007Q1

REPORT INFORMATION
  Report Type: 
  Country: None (occurrence: None)
  Receive Date: 20070205
  Receipt Date: 20070205
  Transmission Date: 20070707
  Serious: Yes (Hospitalization)
  Sender: FDA-Public Use
  Company Number: None

PATIENT
  Sex: Female
  Weight: 80.9217 kg

DRUGS (4)
  1. IRINOTECAN HCL [Suspect]
     Indication: COLON CANCER METASTATIC
     Dosage: 240MG/M2  Q3W   IV
     Route: 042
     Dates: start: 20061227
  2. IRINOTECAN HCL [Suspect]
     Indication: COLON CANCER METASTATIC
     Dosage: 240MG/M2  Q3W   IV
     Route: 042
     Dates: start: 20070117
  3. XELODA [Concomitant]
  4. AVASTIN [Concomitant]

REACTIONS (5)
  - CLOSTRIDIAL INFECTION [None]
  - DIARRHOEA [None]
  - HYPOTENSION [None]
  - HYPOVOLAEMIA [None]
  - VOMITING [None]
